FAERS Safety Report 16122992 (Version 1)
Quarter: 2019Q1

REPORT INFORMATION
  Report Type: Spontaneous
  Country: FR (occurrence: FR)
  Receive Date: 20190327
  Receipt Date: 20190327
  Transmission Date: 20190418
  Serious: Yes (Other)
  Sender: FDA-Public Use
  Company Number: FR-TEVA-2019-FR-1029814

PATIENT
  Age: 67 Year
  Sex: Female
  Weight: 55 kg

DRUGS (2)
  1. IRINOTECAN [Suspect]
     Active Substance: IRINOTECAN
     Indication: BILIARY NEOPLASM
     Route: 041
     Dates: start: 20190129
  2. FLUOROURACILE [Suspect]
     Active Substance: FLUOROURACIL
     Indication: BILIARY NEOPLASM
     Route: 041
     Dates: start: 20190129, end: 20190131

REACTIONS (1)
  - Urticaria [Not Recovered/Not Resolved]

NARRATIVE: CASE EVENT DATE: 20190206
